FAERS Safety Report 12308807 (Version 1)
Quarter: 2016Q2

REPORT INFORMATION
  Report Type: Spontaneous
  Country: US (occurrence: None)
  Receive Date: 20160426
  Receipt Date: 20160426
  Transmission Date: 20160815
  Serious: Yes (Other)
  Sender: FDA-Public Use
  Company Number: None

PATIENT
  Age: 20 Month
  Sex: Male
  Weight: 11.34 kg

DRUGS (5)
  1. BENADRYL [Concomitant]
     Active Substance: DIPHENHYDRAMINE HYDROCHLORIDE
  2. AMOXIL [Suspect]
     Active Substance: AMOXICILLIN
     Indication: SINUSITIS
     Dosage: 14 TEASPOON(S) TWICE A DAY TAKEN BY MOUTH
     Route: 048
     Dates: start: 20160415, end: 20160422
  3. MOTRIN [Concomitant]
     Active Substance: IBUPROFEN
  4. PREDNISONE. [Concomitant]
     Active Substance: PREDNISONE
  5. TYLENOL [Concomitant]
     Active Substance: ACETAMINOPHEN

REACTIONS (2)
  - Urticaria [None]
  - Viral infection [None]

NARRATIVE: CASE EVENT DATE: 20160423
